FAERS Safety Report 5656136-0 (Version None)
Quarter: 2008Q1

REPORT INFORMATION
  Report Type: 
  Country: None (occurrence: None)
  Receive Date: 20080305
  Receipt Date: 20080219
  Transmission Date: 20080703
  Serious: Yes (Death)
  Sender: FDA-Public Use
  Company Number: US021533

PATIENT
  Age: 40 Year
  Sex: Female

DRUGS (16)
  1. ACTIQ [Suspect]
     Indication: FIBROMYALGIA
     Dosage: 1600 UG TID BUCCAL
     Route: 002
     Dates: end: 20070207
  2. ACTIQ [Suspect]
     Indication: RHEUMATOID ARTHRITIS
     Dosage: 1600 UG TID BUCCAL
     Route: 002
     Dates: end: 20070207
  3. DURAGESIC-100 [Suspect]
     Indication: FIBROMYALGIA
     Dosage: 150 UG Q72HR TRANSDERMAL
     Route: 062
     Dates: end: 20070207
  4. DURAGESIC-100 [Suspect]
     Indication: RHEUMATOID ARTHRITIS
     Dosage: 150 UG Q72HR TRANSDERMAL
     Route: 062
     Dates: end: 20070207
  5. MORPHINE [Concomitant]
  6. CELEBREX [Concomitant]
  7. NEURONTIN [Concomitant]
  8. PREVACID [Concomitant]
  9. RESTORIL [Concomitant]
  10. METHADONE HCL [Concomitant]
  11. ENBREL [Concomitant]
  12. ZOFRAN [Concomitant]
  13. WELLBUTRIN [Concomitant]
  14. CALCIUM [Concomitant]
  15. PREDNISONE TAB [Concomitant]
  16. SPIRONOLACTONE [Concomitant]

REACTIONS (5)
  - ACCIDENTAL DEATH [None]
  - APNOEA [None]
  - DRUG TOXICITY [None]
  - INCORRECT DOSE ADMINISTERED [None]
  - RESPIRATORY DISORDER [None]
